FAERS Safety Report 7654361-0 (Version None)
Quarter: 2011Q3

REPORT INFORMATION
  Report Type: 
  Country: None (occurrence: None)
  Receive Date: 20110803
  Receipt Date: 20110729
  Transmission Date: 20111222
  Serious: Yes (Other)
  Sender: FDA-Public Use
  Company Number: US-PFIZER INC-2011131331

PATIENT
  Sex: Male

DRUGS (15)
  1. XANAX [Suspect]
     Dosage: 1 MG, 3X/DAY (TAKE 1 TABLET BY MOUTH THREE TIMES DAILY AS NEEDED)
     Route: 048
  2. LIPITOR [Suspect]
     Dosage: 10 MG, 1X/DAY (TAKE 1 TABLET BY MOUTH DAILY)
     Route: 048
  3. HYDROCHLOROTHIAZIDE [Suspect]
     Dosage: 25 MG, 1X/DAY (TAKE 1 TABLET BY MOUTH DAILY)
     Route: 048
  4. METFORMIN HCL [Suspect]
     Dosage: 1000 MG, 2X/DAY (TAKE 1 TABLET BY MOUTH TWICE DAILY)
     Route: 048
  5. CLONIDINE HYDROCHLORIDE [Concomitant]
     Dosage: 0.1 MG, 2X/DAY (TAKE 1 TABLET BY MOUTH TWICE DAILY)
     Route: 048
  6. FOSAMAX [Concomitant]
     Dosage: 70 MG, WEEKLY (TAKE 1 TABLET BY MOUTH Q WEEK)
     Route: 048
  7. ETODOLAC [Concomitant]
     Indication: ARTHRITIS
     Dosage: 400 MG, 2X/DAY (TAKE 1 TABLET BY MOUTH TWICE DAILY)
     Route: 048
  8. NEXIUM [Concomitant]
     Dosage: 40 MG, 1X/DAY (TAKE 1 CAPSULE BY MOUTH DAILY)
     Route: 048
  9. PRIMIDONE [Concomitant]
     Dosage: 50 MG, 1X/DAY (1 TABLET BY MOUTH AT BEDTIME EVERY NIGHT)
     Route: 048
  10. AMANTADINE HYDROCHLORIDE [Concomitant]
     Dosage: 100 MG, 2X/DAY (TAKE 1 CAPSULE BY MOUTH TWICE DAILY)
     Route: 048
  11. ACETYLSALICYLIC ACID [Concomitant]
     Dosage: 81 MG, 1X/DAY (1 TABLET BY MOUTH IN THE MORNING)
     Route: 048
  12. RANITIDINE [Concomitant]
     Dosage: 150 MG, 2X/DAY (TAKE 1 CAPSULE BY MOUTH TWICE DAILY)
     Route: 048
  13. LOPRESSOR [Concomitant]
     Dosage: 50 MG TWICE DAILY
     Route: 048
  14. MICRONASE [Suspect]
     Dosage: 2.5 MG, 1X/DAY (TAKE 1 TABLET BY MOUTH DAILY)
     Route: 048
  15. PAXIL [Concomitant]
     Dosage: 20 MG, 1X/DAY (TAKE 1 TABLET BY MOUTH DAILY)
     Route: 048

REACTIONS (8)
  - PERIPHERAL VASCULAR DISORDER [None]
  - TYPE 2 DIABETES MELLITUS [None]
  - SLEEP APNOEA SYNDROME [None]
  - SYNCOPE [None]
  - NEPHROLITHIASIS [None]
  - MULTIPLE MYELOMA [None]
  - HYPERLIPIDAEMIA [None]
  - MALIGNANT HYPERTENSION [None]
